FAERS Safety Report 11743880 (Version 4)
Quarter: 2015Q4

REPORT INFORMATION
  Report Type: Spontaneous
  Country: GB (occurrence: GB)
  Receive Date: 20151116
  Receipt Date: 20151224
  Transmission Date: 20160304
  Serious: Yes (Other)
  Sender: FDA-Public Use
  Company Number: PHHY2015GB145517

PATIENT
  Sex: Male

DRUGS (3)
  1. PREFIBIN [Suspect]
     Active Substance: BUPRENORPHINE
     Indication: SMOKING CESSATION THERAPY
     Route: 065
  2. NICORETTE//NICOTINE BITARTRATE [Suspect]
     Active Substance: NICOTINE BITARTRATE
     Indication: SMOKING CESSATION THERAPY
     Dosage: 15 MG, UNK
     Route: 065
  3. NICOTINE. [Suspect]
     Active Substance: NICOTINE
     Indication: PRODUCT USED FOR UNKNOWN INDICATION
     Route: 065

REACTIONS (12)
  - Incontinence [Unknown]
  - Product quality issue [Unknown]
  - Insomnia [Unknown]
  - Drug effect increased [Unknown]
  - Drug dependence [Not Recovered/Not Resolved]
  - Withdrawal syndrome [Unknown]
  - Overdose [Not Recovered/Not Resolved]
  - Anxiety [Unknown]
  - Loss of consciousness [Unknown]
  - General physical health deterioration [Unknown]
  - Migraine [Unknown]
  - Drug ineffective [Unknown]
